FAERS Safety Report 7625737-2 (Version None)
Quarter: 2011Q3

REPORT INFORMATION
  Report Type: 
  Country: None (occurrence: None)
  Receive Date: 20110713
  Receipt Date: 20110628
  Transmission Date: 20111222
  Serious: Yes (Death)
  Sender: FDA-Public Use
  Company Number: AUR-APL-2011-03845

PATIENT
  Age: 28 Year
  Sex: Male

DRUGS (8)
  1. METHAMPHETAMINE HYDROCHLORIDE [Suspect]
     Indication: PRODUCT USED FOR UNKNOWN INDICATION
     Dates: end: 20070101
  2. PAROXETINE HCL [Suspect]
     Indication: PRODUCT USED FOR UNKNOWN INDICATION
     Dates: end: 20070101
  3. VALPROIC ACID [Suspect]
     Indication: PRODUCT USED FOR UNKNOWN INDICATION
     Dates: end: 20070101
  4. VALPROIC ACID [Concomitant]
  5. PAROXETINE HCL [Concomitant]
  6. METHAMPHETAMINE HYDROCHLORIDE [Concomitant]
  7. TRIHEXYPHENIDYL HCL [Concomitant]
  8. TRIHEXYPHENIDYL HCL [Suspect]
     Indication: PRODUCT USED FOR UNKNOWN INDICATION
     Dates: end: 20070101

REACTIONS (4)
  - DRUG ABUSE [None]
  - INTENTIONAL DRUG MISUSE [None]
  - CARDIAC ARREST [None]
  - RESPIRATORY ARREST [None]
